FAERS Safety Report 4773834-1 (Version None)
Quarter: 2005Q3

REPORT INFORMATION
  Report Type: 
  Country: None (occurrence: None)
  Receive Date: 20050920
  Receipt Date: 20050912
  Transmission Date: 20060218
  Serious: Yes (Hospitalization)
  Sender: FDA-Public Use
  Company Number: GB-GLAXOSMITHKLINE-B0393657A

PATIENT
  Age: 65 Year

DRUGS (12)
  1. ONDANSETRON [Suspect]
     Dosage: 8MG TWICE PER DAY
     Route: 040
     Dates: start: 20050531
  2. DEXAMETHASONE [Suspect]
     Dosage: 10MG UNKNOWN
     Route: 040
     Dates: start: 20050531
  3. OXALIPLATIN [Suspect]
     Dosage: 145MG UNKNOWN
     Route: 042
     Dates: start: 20050531
  4. FLUOROURACIL [Suspect]
     Route: 042
     Dates: start: 20050531
  5. DOMPERIDONE [Suspect]
     Dosage: 20MG UNKNOWN
     Route: 048
  6. CALCIUM LEVOFOLINATE [Suspect]
     Dosage: 175MG PER DAY
     Route: 042
  7. DEXAMETHASONE [Suspect]
     Dosage: 4MG TWICE PER DAY
     Route: 048
  8. ONDANSETRON [Suspect]
     Dosage: 8MG TWICE PER DAY
     Route: 048
  9. WARFARIN [Concomitant]
     Route: 048
  10. OMEPRAZOLE [Concomitant]
     Dosage: 20MG IN THE MORNING
     Route: 048
  11. SLOW-K [Concomitant]
     Indication: BLOOD POTASSIUM DECREASED
     Route: 048
  12. BENDROFLUMETHIAZIDE [Concomitant]
     Indication: HYPERTENSION
     Route: 065

REACTIONS (1)
  - CHOKING SENSATION [None]
